FAERS Safety Report 25152051 (Version 1)
Quarter: 2025Q2

REPORT INFORMATION
  Report Type: Spontaneous
  Country: CA (occurrence: CA)
  Receive Date: 20250402
  Receipt Date: 20250402
  Transmission Date: 20250716
  Serious: Yes (Other)
  Sender: MYLAN
  Company Number: CA-MYLANLABS-2022M1027350

PATIENT
  Sex: Male

DRUGS (4)
  1. SILDENAFIL [Suspect]
     Active Substance: SILDENAFIL
     Indication: Erectile dysfunction
  2. TADALAFIL [Suspect]
     Active Substance: TADALAFIL
     Indication: Product used for unknown indication
  3. VARDENAFIL [Suspect]
     Active Substance: VARDENAFIL HYDROCHLORIDE
     Indication: Product used for unknown indication
  4. AVANAFIL [Suspect]
     Active Substance: AVANAFIL
     Indication: Product used for unknown indication

REACTIONS (3)
  - Serous retinal detachment [Unknown]
  - Retinal vascular occlusion [Unknown]
  - Optic ischaemic neuropathy [Unknown]
